FAERS Safety Report 5576280-6 (Version None)
Quarter: 2007Q4

REPORT INFORMATION
  Report Type: 
  Country: None (occurrence: None)
  Receive Date: 20071228
  Receipt Date: 20071217
  Transmission Date: 20080405
  Serious: Yes (Hospitalization)
  Sender: FDA-Public Use
  Company Number: ES-ROCHE-528688

PATIENT
  Age: 73 Year
  Sex: Female
  Weight: 78 kg

DRUGS (5)
  1. CAPECITABINE [Suspect]
     Dosage: GIVEN ON DAYS ONE TO FOURTEEN EVERY THREE WEEKS.
     Route: 048
     Dates: start: 20070924, end: 20071126
  2. BEVACIZUMAB [Suspect]
     Dosage: GIVEN ON DAY ONE EVERY THREE WEEKS. DOSAGE FORM REPORTED AS: INFUSION.
     Route: 042
     Dates: start: 20070924, end: 20071126
  3. OXALIPLATIN [Suspect]
     Dosage: GIVEN ON DAY ONE EVERY THREE WEEKS. DOSAGE FORM REPORTED AS: INFUSION.
     Route: 042
     Dates: start: 20070924, end: 20071126
  4. VERAPAMIL [Concomitant]
     Dosage: REPORTED AS VERAPAMILE.
     Dates: start: 20000101
  5. ACETYLSALICYLIC ACID SRT [Concomitant]
     Dates: start: 20000101

REACTIONS (1)
  - MUCOSAL INFLAMMATION [None]
